FAERS Safety Report 15496088 (Version 1)
Quarter: 2018Q4

REPORT INFORMATION
  Report Type: Spontaneous
  Country: AU (occurrence: AU)
  Receive Date: 20181012
  Receipt Date: 20181012
  Transmission Date: 20190205
  Serious: Yes (Other)
  Sender: FDA-Public Use
  Company Number: AU-SA-2018SA279946

PATIENT

DRUGS (2)
  1. THYMOGLOBULINE [Suspect]
     Active Substance: LAPINE T-LYMPHOCYTE IMMUNE GLOBULIN
  2. ORITAVANCIN. [Suspect]
     Active Substance: ORITAVANCIN

REACTIONS (2)
  - Bilirubin conjugated increased [Recovering/Resolving]
  - Acute respiratory distress syndrome [Recovering/Resolving]
